FAERS Safety Report 8549514-3 (Version None)
Quarter: 2012Q3

REPORT INFORMATION
  Report Type: 
  Country: None (occurrence: None)
  Receive Date: 20120730
  Receipt Date: 20120725
  Transmission Date: 20120928
  Serious: Yes (Life-Threatening, Hospitalization)
  Sender: FDA-Public Use
  Company Number: CA-ASTRAZENECA-2012SE40178

PATIENT
  Age: 81 Year
  Sex: Female

DRUGS (7)
  1. METOPROLOL TARTRATE [Concomitant]
     Route: 048
  2. WARFARIN SODIUM [Concomitant]
     Route: 048
  3. NEXIUM [Suspect]
     Route: 048
  4. TELMISARTAN [Concomitant]
     Dosage: DAILY
     Route: 048
  5. OMEPRAZOLE (PRISOLEC) [Suspect]
     Indication: HIATUS HERNIA
     Route: 048
  6. NEXIUM [Suspect]
     Route: 048
     Dates: start: 20111101, end: 20111101
  7. OMEPRAZOLE (PRISOLEC) [Suspect]
     Route: 048

REACTIONS (5)
  - CHILLS [None]
  - CARDIAC ARREST [None]
  - HYPERHIDROSIS [None]
  - EYE HAEMORRHAGE [None]
  - LOSS OF CONSCIOUSNESS [None]
